FAERS Safety Report 4816255-5 (Version None)
Quarter: 2005Q4

REPORT INFORMATION
  Report Type: 
  Country: None (occurrence: None)
  Receive Date: 20051028
  Receipt Date: 20051024
  Transmission Date: 20060501
  Serious: Yes (Death)
  Sender: FDA-Public Use
  Company Number: 2005RR-00975

PATIENT
  Age: 40 Year
  Sex: Male

DRUGS (3)
  1. SERTRALINE (SERTRALINE) UNKNOWN [Suspect]
     Indication: DEPRESSION
     Dosage: 50 MG, QD, ORAL
     Route: 048
     Dates: start: 20041213, end: 20041226
  2. ZOPICLONE (ZOPICLONE) [Suspect]
  3. FLUOXETINE [Suspect]

REACTIONS (2)
  - ALCOHOL POISONING [None]
  - HYPOTHERMIA [None]
